FAERS Safety Report 7901197-9 (Version None)
Quarter: 2011Q4

REPORT INFORMATION
  Report Type: 
  Country: None (occurrence: None)
  Receive Date: 20111108
  Receipt Date: 20111027
  Transmission Date: 20120403
  Serious: Yes (Hospitalization, Other)
  Sender: FDA-Public Use
  Company Number: PHFR2011GB03424

PATIENT
  Sex: Female
  Weight: 101 kg

DRUGS (5)
  1. TRIFLUOPERAZINE HCL [Concomitant]
     Dosage: 9 MG, UNK
     Route: 065
  2. CLOZARIL [Suspect]
     Indication: SCHIZOPHRENIA
     Dosage: 500 MG, UNK
     Route: 048
     Dates: start: 20040526
  3. DULOXETIME HYDROCHLORIDE [Concomitant]
     Dosage: 90 MG, UNK
     Route: 065
  4. AMITRIPTYLINE HCL [Concomitant]
     Dosage: UNK
     Route: 065
  5. LAMOTRIGINE [Concomitant]
     Route: 065

REACTIONS (3)
  - PSYCHOTIC DISORDER [None]
  - SUICIDAL IDEATION [None]
  - MENTAL IMPAIRMENT [None]
